FAERS Safety Report 15175848 (Version 1)
Quarter: 2018Q3

REPORT INFORMATION
  Report Type: Spontaneous
  Country: FR (occurrence: FR)
  Receive Date: 20180720
  Receipt Date: 20180720
  Transmission Date: 20181010
  Serious: Yes (Hospitalization)
  Sender: FDA-Public Use
  Company Number: FR-TEVA-2018-FR-929344

PATIENT
  Age: 81 Year
  Sex: Female

DRUGS (10)
  1. LAMOTRIGINE. [Suspect]
     Active Substance: LAMOTRIGINE
     Indication: POISONING DELIBERATE
     Route: 048
     Dates: start: 20180515, end: 20180515
  2. BISOCE 2,5 MG, COMPRIM? PELLICUL? S?CABLE [Suspect]
     Active Substance: BISOPROLOL FUMARATE
     Indication: POISONING DELIBERATE
     Route: 048
     Dates: start: 20180515, end: 20180515
  3. KEPPRA [Suspect]
     Active Substance: LEVETIRACETAM
     Indication: POISONING DELIBERATE
     Route: 048
     Dates: start: 20180515, end: 20180515
  4. PANTOPRAZOLE [Suspect]
     Active Substance: PANTOPRAZOLE
     Indication: POISONING DELIBERATE
     Route: 048
     Dates: start: 20180515, end: 20180515
  5. DIFFU K, G?LULE [Suspect]
     Active Substance: POTASSIUM CHLORIDE
     Indication: POISONING DELIBERATE
     Route: 048
     Dates: start: 20180515, end: 20180515
  6. DAFALGAN [Suspect]
     Active Substance: ACETAMINOPHEN
     Indication: POISONING DELIBERATE
     Route: 048
     Dates: start: 20180515, end: 20180515
  7. LAMOTRIGINE. [Suspect]
     Active Substance: LAMOTRIGINE
     Indication: POISONING DELIBERATE
     Route: 048
     Dates: start: 20180515, end: 20180515
  8. LASILIX [Suspect]
     Active Substance: FUROSEMIDE
     Indication: POISONING DELIBERATE
     Route: 048
     Dates: start: 20180515, end: 20180515
  9. SERESTA [Suspect]
     Active Substance: OXAZEPAM
     Indication: POISONING DELIBERATE
     Route: 048
     Dates: start: 20180515, end: 20180515
  10. ELIQUIS [Suspect]
     Active Substance: APIXABAN
     Indication: POISONING DELIBERATE
     Route: 048
     Dates: start: 20180515, end: 20180515

REACTIONS (4)
  - Coma [Recovering/Resolving]
  - Bradycardia [Recovering/Resolving]
  - Bradypnoea [Recovering/Resolving]
  - Hypotension [Recovering/Resolving]

NARRATIVE: CASE EVENT DATE: 20180515
